FAERS Safety Report 4557848-2 (Version None)
Quarter: 2005Q1

REPORT INFORMATION
  Report Type: 
  Country: None (occurrence: None)
  Receive Date: 20050103
  Receipt Date: 20041118
  Transmission Date: 20050727
  Serious: Yes (Other)
  Sender: FDA-Public Use
  Company Number: 2004UW19504

PATIENT
  Age: 59 Year
  Sex: Female
  Weight: 92.986 kg

DRUGS (11)
  1. CRESTOR [Suspect]
     Indication: BLOOD CHOLESTEROL INCREASED
     Dates: end: 20041114
  2. ZETIA [Concomitant]
  3. SYNTHROID [Concomitant]
  4. WARFARIN SODIUM [Concomitant]
  5. XANAX [Concomitant]
  6. ATENOLOL [Concomitant]
  7. PAIN PILLS [Concomitant]
  8. LASIX [Concomitant]
  9. ADVAIR DISKUS 100/50 [Concomitant]
  10. LEXAPRO [Concomitant]
  11. WELLBUTRIN [Concomitant]

REACTIONS (6)
  - ASTHENIA [None]
  - BACK PAIN [None]
  - DIFFICULTY IN WALKING [None]
  - DYSPNOEA [None]
  - PAIN [None]
  - PAIN IN EXTREMITY [None]
